FAERS Safety Report 5077381-1 (Version None)
Quarter: 2006Q3

REPORT INFORMATION
  Report Type: 
  Country: None (occurrence: None)
  Receive Date: 20060810
  Receipt Date: 20060207
  Transmission Date: 20061208
  Serious: No
  Sender: FDA-Public Use
  Company Number: US-GLAXOSMITHKLINE-A0592685A

PATIENT
  Age: 58 Year
  Sex: Female

DRUGS (4)
  1. PAXIL [Suspect]
     Indication: DEPRESSION
     Dosage: 60MG PER DAY
     Route: 048
     Dates: end: 20051001
  2. WELLBUTRIN [Concomitant]
  3. TOPAMAX [Concomitant]
  4. LUDIOMIL [Concomitant]

REACTIONS (1)
  - ALCOHOLISM [None]
